FAERS Safety Report 20802353 (Version 1)
Quarter: 2022Q2

REPORT INFORMATION
  Report Type: Spontaneous
  Country: FR (occurrence: FR)
  Receive Date: 20220509
  Receipt Date: 20220509
  Transmission Date: 20220721
  Serious: Yes (Death, Life-Threatening, Other)
  Sender: FDA-Public Use
  Company Number: None

PATIENT
  Age: 72 Year
  Sex: Male
  Weight: 78 kg

DRUGS (17)
  1. ORGARAN [Suspect]
     Active Substance: DANAPAROID SODIUM
     Indication: Heart valve replacement
     Dosage: 2200 INTERNATIONAL UNIT, QD 1100UI 2/J (START DATE: 22-MAR-2022)
     Route: 058
     Dates: end: 20220328
  2. METFORMIN [Suspect]
     Active Substance: METFORMIN HYDROCHLORIDE
     Indication: Type 2 diabetes mellitus
     Dosage: 2000 MILLIGRAM, QD (1000MG 2/J  )
     Route: 048
     Dates: end: 20220107
  3. WARFARIN SODIUM [Suspect]
     Active Substance: WARFARIN SODIUM
     Indication: Heart valve replacement
     Dosage: 3 MILLIGRAM, QD
     Route: 048
     Dates: start: 20220308, end: 20220328
  4. BISOPROLOL FUMARATE [Concomitant]
     Active Substance: BISOPROLOL FUMARATE
     Dosage: UNK
  5. LANSOPRAZOLE [Concomitant]
     Active Substance: LANSOPRAZOLE
     Dosage: UNK
  6. DAPAGLIFLOZIN [Concomitant]
     Active Substance: DAPAGLIFLOZIN
     Dosage: UNK
  7. NOVORAPID [Concomitant]
     Active Substance: INSULIN ASPART
     Dosage: UNK
  8. ENTRESTO [Concomitant]
     Active Substance: SACUBITRIL\VALSARTAN
     Dosage: UNK
  9. SPIRONOLACTONE [Concomitant]
     Active Substance: SPIRONOLACTONE
     Dosage: UNK
  10. OXAZEPAM [Concomitant]
     Active Substance: OXAZEPAM
     Dosage: UNK
  11. ALPRAZOLAM [Concomitant]
     Active Substance: ALPRAZOLAM
     Dosage: UNK
  12. OXAZEPAM [Concomitant]
     Active Substance: OXAZEPAM
     Dosage: UNK
  13. SINTROM [Concomitant]
     Active Substance: ACENOCOUMAROL
     Dosage: UNK
  14. EUPANTOL [Concomitant]
     Active Substance: PANTOPRAZOLE SODIUM
     Dosage: UNK
  15. DOLIPRANE [Concomitant]
     Active Substance: ACETAMINOPHEN
     Dosage: UNK
  16. VILDAGLIPTIN [Concomitant]
     Active Substance: VILDAGLIPTIN
     Dosage: UNK
  17. XANAX [Concomitant]
     Active Substance: ALPRAZOLAM
     Dosage: UNK

REACTIONS (2)
  - Haemoptysis [Fatal]
  - Metabolic acidosis [Recovered/Resolved with Sequelae]

NARRATIVE: CASE EVENT DATE: 20220328
